FAERS Safety Report 7336508-9 (Version None)
Quarter: 2011Q1

REPORT INFORMATION
  Report Type: 
  Country: None (occurrence: None)
  Receive Date: 20110307
  Receipt Date: 20110208
  Transmission Date: 20110831
  Serious: No
  Sender: FDA-Public Use
  Company Number: US-AMGEN-USASP2011004031

PATIENT
  Age: 74 Year
  Sex: Male
  Weight: 96.145 kg

DRUGS (2)
  1. XGEVA [Suspect]
     Indication: METASTATIC CARCINOMA OF THE BLADDER
     Dosage: 120 MG, QMO
     Route: 058
     Dates: start: 20110111, end: 20110125
  2. GEMCITABINE [Concomitant]

REACTIONS (2)
  - URTICARIA [None]
  - RASH ERYTHEMATOUS [None]
